FAERS Safety Report 6189384-4 (Version None)
Quarter: 2009Q2

REPORT INFORMATION
  Report Type: 
  Country: None (occurrence: None)
  Receive Date: 20090512
  Receipt Date: 20090506
  Transmission Date: 20091009
  Serious: Yes (Death)
  Sender: FDA-Public Use
  Company Number: 2009SP009651

PATIENT
  Age: 58 Year
  Sex: Male
  Weight: 85.2 kg

DRUGS (4)
  1. PEG-INTRON [Suspect]
     Indication: HEPATITIS C
     Dosage: 120 MCG; SC
     Route: 058
     Dates: start: 20080716
  2. REBETOL [Suspect]
     Indication: HEPATITIS C
     Dosage: 1000 MG; PO
     Route: 048
     Dates: start: 20080716
  3. REMICADE [Suspect]
     Indication: HEPATITIS C
     Dosage: 415 MG; IV
     Route: 042
     Dates: start: 20080716, end: 20090408
  4. THERAFLU [Concomitant]

REACTIONS (1)
  - INFLUENZA LIKE ILLNESS [None]
